FAERS Safety Report 5959352-3 (Version None)
Quarter: 2008Q4

REPORT INFORMATION
  Report Type: 
  Country: None (occurrence: None)
  Receive Date: 20081117
  Receipt Date: 20081103
  Transmission Date: 20090506
  Serious: Yes (Other)
  Sender: FDA-Public Use
  Company Number: 2008AL011740

PATIENT
  Age: 72 Year
  Sex: Male

DRUGS (11)
  1. RAMIPRIL [Suspect]
     Indication: HYPERTENSION
     Dosage: 5 MG; BID; PO
     Route: 048
     Dates: start: 20080304, end: 20081001
  2. ACYCLOVIR [Concomitant]
  3. PARACETAMOL [Concomitant]
  4. ATORVASATIN [Concomitant]
  5. NITROGLYCERIN [Concomitant]
  6. CLOPIDOGREL [Concomitant]
  7. OMEPRAZOLE [Concomitant]
  8. ACETYLSALICYLIC ACID SRT [Concomitant]
  9. OMACOR [Concomitant]
  10. ATENOLOL [Concomitant]
  11. RAMIPRIL [Concomitant]

REACTIONS (2)
  - AGITATION [None]
  - PARKINSONISM [None]
